FAERS Safety Report 25283616 (Version 1)
Quarter: 2025Q2

REPORT INFORMATION
  Report Type: Spontaneous
  Country: GR (occurrence: GR)
  Receive Date: 20250508
  Receipt Date: 20250508
  Transmission Date: 20250717
  Serious: Yes (Other)
  Sender: MERCK SHARP & DOHME LLC
  Company Number: GR-MYLANLABS-2025M1034990

PATIENT
  Age: 76 Year
  Sex: Male

DRUGS (1)
  1. METFORMIN\SITAGLIPTIN [Suspect]
     Active Substance: METFORMIN\SITAGLIPTIN
     Indication: Diabetes mellitus
     Route: 048

REACTIONS (2)
  - Bacteraemia [Unknown]
  - Drug ineffective [Unknown]
